FAERS Safety Report 5594578-2 (Version None)
Quarter: 2008Q1

REPORT INFORMATION
  Report Type: 
  Country: None (occurrence: None)
  Receive Date: 20080115
  Receipt Date: 20080102
  Transmission Date: 20080703
  Serious: Yes (Hospitalization)
  Sender: FDA-Public Use
  Company Number: 02100-EUR-08-0002

PATIENT
  Age: 67 Year
  Sex: Female

DRUGS (5)
  1. CILOSTAZOL [Suspect]
     Indication: INTERMITTENT CLAUDICATION
     Dosage: 200 MG ORAL
     Route: 048
     Dates: start: 20070309
  2. ASPIRIN [Concomitant]
  3. SIMVASTATIN [Concomitant]
  4. CLOPIDOGREL BISULFATE [Concomitant]
  5. PANTOPRAZOLE SODIUM [Concomitant]

REACTIONS (2)
  - CONDITION AGGRAVATED [None]
  - PERIPHERAL ARTERIAL OCCLUSIVE DISEASE [None]
